FAERS Safety Report 8798375 (Version 1)
Quarter: 2012Q4

REPORT INFORMATION
  Report Type: 
  Country: PL (occurrence: PL)
  Receive Date: 20120920
  Receipt Date: 20120920
  Transmission Date: 20130627
  Serious: Yes (Disabling)
  Sender: FDA-Public Use
  Company Number: PL-ASTRAZENECA-2012SE71518

PATIENT
  Age: 56 Year
  Sex: Female

DRUGS (1)
  1. CRESTOR [Suspect]
     Indication: HYPERCHOLESTEROLAEMIA
     Route: 048
     Dates: start: 201112, end: 201207

REACTIONS (2)
  - Pancreatitis chronic [Recovering/Resolving]
  - Diabetes mellitus [Not Recovered/Not Resolved]
